FAERS Safety Report 6542963-4 (Version None)
Quarter: 2010Q1

REPORT INFORMATION
  Report Type: 
  Country: None (occurrence: None)
  Receive Date: 20100120
  Receipt Date: 20100112
  Transmission Date: 20100710
  Serious: Yes (Hospitalization)
  Sender: FDA-Public Use
  Company Number: JP-SANOFI-AVENTIS-F01200900928

PATIENT
  Age: 79 Year
  Sex: Female
  Weight: 49.9 kg

DRUGS (14)
  1. CLOPIDOGREL BISULFATE [Suspect]
     Indication: ACUTE CORONARY SYNDROME
     Dosage: DOSE TEXT: MAINTENANCE DOSE
     Route: 048
     Dates: start: 20080921, end: 20090424
  2. CLOPIDOGREL BISULFATE [Suspect]
     Indication: ANGINA UNSTABLE
     Dosage: DOSE TEXT: MAINTENANCE DOSE
     Route: 048
     Dates: start: 20080921, end: 20090424
  3. CLOPIDOGREL BISULFATE [Suspect]
     Route: 048
     Dates: start: 20090502
  4. CLOPIDOGREL BISULFATE [Suspect]
     Route: 048
     Dates: start: 20090502
  5. ASPIRIN [Suspect]
     Indication: ANGINA UNSTABLE
     Route: 048
     Dates: end: 20090424
  6. ASPIRIN [Suspect]
     Route: 048
     Dates: start: 20090502
  7. AMLODIPINE [Concomitant]
     Route: 048
  8. RENIVACE [Concomitant]
     Route: 048
  9. MEVALOTIN [Concomitant]
     Route: 048
     Dates: end: 20080923
  10. MEVALOTIN [Concomitant]
     Route: 048
     Dates: start: 20080924
  11. WARFARIN [Concomitant]
     Route: 048
  12. HUMALOG [Concomitant]
     Route: 058
  13. HUMACART-N [Concomitant]
     Route: 048
  14. NITOROL [Concomitant]
     Indication: ANGINA UNSTABLE
     Route: 022
     Dates: start: 20080924, end: 20080924

REACTIONS (2)
  - COLITIS ISCHAEMIC [None]
  - LARGE INTESTINAL HAEMORRHAGE [None]
